FAERS Safety Report 6263787-1 (Version None)
Quarter: 2009Q3

REPORT INFORMATION
  Report Type: 
  Country: None (occurrence: None)
  Receive Date: 20090710
  Receipt Date: 20090630
  Transmission Date: 20100115
  Serious: Yes (Other)
  Sender: FDA-Public Use
  Company Number: PHHY2009BR27520

PATIENT
  Sex: Female
  Weight: 64.25 kg

DRUGS (6)
  1. ENABLEX [Suspect]
     Indication: HYPERTONIC BLADDER
     Dosage: 1 TAB/DAY
     Route: 048
     Dates: start: 20080601
  2. MODURETIC 5-50 [Concomitant]
     Indication: HYPERTENSION
     Dosage: 1 TAB/DAY
     Route: 048
     Dates: start: 19990601
  3. MODURETIC 5-50 [Concomitant]
     Indication: FLUID RETENTION
  4. INDAPEN [Concomitant]
     Indication: HYPERTENSION
     Dosage: 1 TAB/DAY
     Route: 048
     Dates: start: 20090401
  5. NAPRIX [Concomitant]
  6. ARADOIS [Concomitant]

REACTIONS (11)
  - COUGH [None]
  - DYSGEUSIA [None]
  - HIATUS HERNIA [None]
  - HYPERSENSITIVITY [None]
  - INCREASED BRONCHIAL SECRETION [None]
  - MEMORY IMPAIRMENT [None]
  - MULTIPLE SCLEROSIS [None]
  - NASAL CONGESTION [None]
  - NASOPHARYNGITIS [None]
  - PRODUCTIVE COUGH [None]
  - SURGERY [None]
